FAERS Safety Report 21812396 (Version 6)
Quarter: 2023Q2

REPORT INFORMATION
  Report Type: Spontaneous
  Country: US (occurrence: US)
  Receive Date: 20230103
  Receipt Date: 20230614
  Transmission Date: 20230721
  Serious: Yes (Hospitalization, Other)
  Sender: FDA-Public Use
  Company Number: US-PFIZER INC-PV202200130363

PATIENT
  Age: 37 Year
  Sex: Female

DRUGS (2)
  1. XELJANZ XR [Suspect]
     Active Substance: TOFACITINIB CITRATE
     Indication: Psoriatic arthropathy
     Dosage: 11 MG, 1X/DAY
     Route: 048
     Dates: start: 202210
  2. XELJANZ XR [Suspect]
     Active Substance: TOFACITINIB CITRATE
     Dosage: 11 MG, 1X/DAY
     Route: 048
     Dates: start: 20221111

REACTIONS (8)
  - Pneumonia [Unknown]
  - Anaemia [Unknown]
  - Joint dislocation [Unknown]
  - Ehlers-Danlos syndrome [Unknown]
  - Inappropriate schedule of product administration [Unknown]
  - Product dose omission in error [Not Recovered/Not Resolved]
  - Memory impairment [Not Recovered/Not Resolved]
  - Oligomenorrhoea [Unknown]

NARRATIVE: CASE EVENT DATE: 20221201
